FAERS Safety Report 6203639-6 (Version None)
Quarter: 2009Q2

REPORT INFORMATION
  Report Type: 
  Country: None (occurrence: None)
  Receive Date: 20090522
  Receipt Date: 20090522
  Transmission Date: 20091009
  Serious: Yes (Hospitalization, Other)
  Sender: FDA-Public Use
  Company Number: None

PATIENT
  Age: 31 Year
  Sex: Male
  Weight: 106.1417 kg

DRUGS (6)
  1. CELEBREX [Suspect]
  2. LYRICA [Concomitant]
  3. TIZINADINE [Concomitant]
  4. ROZAREM [Concomitant]
  5. SKELAXON [Concomitant]
  6. HYDROCODIENE [Concomitant]

REACTIONS (7)
  - ABDOMINAL DISCOMFORT [None]
  - CHOLECYSTECTOMY [None]
  - DIVERTICULITIS [None]
  - GALLBLADDER DISORDER [None]
  - HAEMORRHAGE [None]
  - INFECTION [None]
  - MULTI-ORGAN DISORDER [None]
